FAERS Safety Report 8479615-X (Version None)
Quarter: 2012Q2

REPORT INFORMATION
  Report Type: 
  Country: None (occurrence: None)
  Receive Date: 20120629
  Receipt Date: 20120628
  Transmission Date: 20120825
  Serious: No
  Sender: FDA-Public Use
  Company Number: US-PFIZER INC-2012122973

PATIENT
  Sex: Male
  Weight: 72.562 kg

DRUGS (7)
  1. CHANTIX [Suspect]
     Indication: SMOKING CESSATION THERAPY
     Dosage: 0.5 MG DAILY
     Route: 048
     Dates: start: 20120517, end: 20120501
  2. FENTANYL [Concomitant]
     Indication: NECK PAIN
  3. CHANTIX [Suspect]
     Dosage: UNK
     Route: 048
     Dates: start: 20120501
  4. OXYCODONE [Concomitant]
     Indication: NECK PAIN
  5. OXYCODONE [Concomitant]
     Indication: MUSCULOSKELETAL PAIN
     Dosage: TWO TABLETS OF 5 MG IN EVERY SIX HOURS
     Route: 048
  6. CHANTIX [Suspect]
     Dosage: 0.5 MG, 1X/DAY
     Dates: end: 20120610
  7. FENTANYL [Concomitant]
     Indication: MUSCULOSKELETAL PAIN
     Dosage: 75 MG, UNK
     Route: 061

REACTIONS (3)
  - TREMOR [None]
  - DECREASED INTEREST [None]
  - NAUSEA [None]
